FAERS Safety Report 14307897 (Version 1)
Quarter: 2017Q4

REPORT INFORMATION
  Report Type: Spontaneous
  Country: US (occurrence: US)
  Receive Date: 20171220
  Receipt Date: 20171220
  Transmission Date: 20180321
  Serious: No
  Sender: FDA-Public Use
  Company Number: US-ELI_LILLY_AND_COMPANY-US201711013245

PATIENT
  Age: 60 Year
  Sex: Female

DRUGS (4)
  1. HUMALOG [Suspect]
     Active Substance: INSULIN LISPRO
     Dosage: 8 U, DAILY, AT LUNCH
     Route: 065
     Dates: start: 2015
  2. INSULIN GLARGINE [Suspect]
     Active Substance: INSULIN GLARGINE
     Indication: PRODUCT USED FOR UNKNOWN INDICATION
     Dosage: 30 U, DAILY, AT BED TIME
     Route: 065
  3. HUMALOG [Suspect]
     Active Substance: INSULIN LISPRO
     Dosage: 20 U, DAILY, AT NSUPPER
     Dates: start: 2015
  4. HUMALOG [Suspect]
     Active Substance: INSULIN LISPRO
     Indication: TYPE 2 DIABETES MELLITUS
     Dosage: 5 U, EACH MORNING
     Route: 065
     Dates: start: 2015

REACTIONS (4)
  - Incorrect dose administered [Recovered/Resolved]
  - Blood glucose abnormal [Recovering/Resolving]
  - Stress [Unknown]
  - Injury associated with device [Unknown]

NARRATIVE: CASE EVENT DATE: 20171128
